FAERS Safety Report 17620095 (Version 1)
Quarter: 2020Q2

REPORT INFORMATION
  Report Type: Spontaneous
  Country: KR (occurrence: KR)
  Receive Date: 20200402
  Receipt Date: 20200402
  Transmission Date: 20200713
  Serious: No
  Sender: FDA-Public Use
  Company Number: KR-009507513-2003KOR010740

PATIENT
  Sex: Male

DRUGS (1)
  1. NASONEX [Suspect]
     Active Substance: MOMETASONE FUROATE
     Dosage: SWALLOWED MEDICINAL LIQUID
     Route: 048

REACTIONS (1)
  - Incorrect route of product administration [Unknown]
